FAERS Safety Report 15675339 (Version 1)
Quarter: 2018Q4

REPORT INFORMATION
  Report Type: Spontaneous
  Country: FR (occurrence: FR)
  Receive Date: 20181130
  Receipt Date: 20181130
  Transmission Date: 20190205
  Serious: Yes (Other)
  Sender: FDA-Public Use
  Company Number: FR-ZYDUS-030812

PATIENT
  Age: 73 Year
  Sex: Female

DRUGS (4)
  1. LITHIUM. [Concomitant]
     Active Substance: LITHIUM
     Indication: BIPOLAR DISORDER
     Dosage: 1 DF, QD 400 MG, 1/DAY
     Route: 048
  2. TRAMADOL. [Suspect]
     Active Substance: TRAMADOL
     Indication: ARTHRALGIA
     Dosage: 50 MG, 1/DAY
     Route: 048
     Dates: start: 201808, end: 20180914
  3. PAROXETINE. [Concomitant]
     Active Substance: PAROXETINE
     Indication: BIPOLAR DISORDER
     Route: 048
  4. TRAMADOL BIOGARAN [Suspect]
     Active Substance: TRAMADOL
     Indication: ARTHRALGIA
     Dosage: PROLONGED-RELEASE TABLET
     Route: 048
     Dates: start: 201808, end: 20180914

REACTIONS (6)
  - Amnesia [Not Recovered/Not Resolved]
  - Medication error [Not Recovered/Not Resolved]
  - Speech disorder [Not Recovered/Not Resolved]
  - Agitation [Not Recovered/Not Resolved]
  - Wrong product administered [Not Recovered/Not Resolved]
  - Mood altered [Not Recovered/Not Resolved]

NARRATIVE: CASE EVENT DATE: 201809
